FAERS Safety Report 25727889 (Version 1)
Quarter: 2025Q3

REPORT INFORMATION
  Report Type: Spontaneous
  Country: US (occurrence: None)
  Receive Date: 20250826
  Receipt Date: 20250826
  Transmission Date: 20251020
  Serious: Yes (Hospitalization)
  Sender: FDA-CTU
  Company Number: None

PATIENT
  Sex: Female

DRUGS (2)
  1. TEZSPIRE [Suspect]
     Active Substance: TEZEPELUMAB-EKKO
     Indication: Asthma
     Dosage: INJECT 1 PEN (210 MG) SUBCUTANEOUSLY (UNDER THE SKIN) EVERY FOUR WEEKS.
     Route: 058
  2. CLARISCAN INJ 50MMOL [Concomitant]

REACTIONS (5)
  - Asthma [None]
  - Impaired quality of life [None]
  - Bone graft [None]
  - Infection [None]
  - Therapy interrupted [None]
